FAERS Safety Report 15056601 (Version 1)
Quarter: 2018Q2

REPORT INFORMATION
  Report Type: Spontaneous
  Country: NL (occurrence: NL)
  Receive Date: 20180623
  Receipt Date: 20180623
  Transmission Date: 20180711
  Serious: Yes (Other)
  Sender: FDA-Public Use
  Company Number: NL-009507513-1806NLD007856

PATIENT
  Age: 49 Year
  Sex: Male

DRUGS (2)
  1. SINEMET [Suspect]
     Active Substance: CARBIDOPA\LEVODOPA
     Indication: PARKINSON^S DISEASE
     Dosage: MORNING 2 TABLETS, AFTERNOON 3 TABLETS, EVENING 3 TABLETS, BEFORE GOING TO BED 2 TABLETS).
     Dates: end: 20180614
  2. SINEMET [Suspect]
     Active Substance: CARBIDOPA\LEVODOPA
     Indication: PARKINSON^S DISEASE
     Dosage: 2 DF, QD
     Dates: start: 20180614

REACTIONS (9)
  - Parkinson^s disease [Unknown]
  - Feeling abnormal [Recovering/Resolving]
  - Body temperature decreased [Recovering/Resolving]
  - Adverse event [Recovered/Resolved]
  - Paraesthesia [Recovering/Resolving]
  - Feeling hot [Recovering/Resolving]
  - Heart rate irregular [Recovering/Resolving]
  - Product physical issue [Unknown]
  - Hyperhidrosis [Recovering/Resolving]

NARRATIVE: CASE EVENT DATE: 20180614
